FAERS Safety Report 8308173-5 (Version None)
Quarter: 2012Q2

REPORT INFORMATION
  Report Type: 
  Country: None (occurrence: None)
  Receive Date: 20120424
  Receipt Date: 20120417
  Transmission Date: 20120825
  Serious: Yes (Hospitalization, Other)
  Sender: FDA-Public Use
  Company Number: US-BAYER-201011624NA

PATIENT
  Age: 40 Year
  Sex: Female
  Weight: 73.469 kg

DRUGS (15)
  1. TOPAMAX [Concomitant]
     Indication: MIGRAINE PROPHYLAXIS
     Dosage: UNK UNK, CONT
     Dates: start: 20060101
  2. MEDROL [Concomitant]
     Dosage: UNK
     Dates: start: 20060116
  3. METHYLPREDNISOLONE [Concomitant]
     Indication: BRONCHITIS
     Dosage: UNK
     Dates: start: 20060101
  4. ZMAX [Concomitant]
  5. ZYRTEC [Concomitant]
     Dosage: UNK
     Dates: start: 20060116
  6. TORADOL [Concomitant]
  7. ZYRTEC-D 12 HOUR [Concomitant]
     Indication: SEASONAL ALLERGY
     Dosage: UNK UNK, CONT
  8. YASMIN [Suspect]
     Indication: ENDOMETRIOSIS
     Dosage: 1 DF (DAILY DOSE), QD, ORAL
     Route: 048
  9. PRILOSEC [Concomitant]
  10. METHYLPREDNISOLONE [Concomitant]
     Indication: COUGH
  11. YASMIN [Suspect]
     Indication: PREMENSTRUAL SYNDROME
  12. COMBIVENT [IPRATROPIUM BROMIDE,SALBUTAMOL] [Concomitant]
     Indication: SEASONAL ALLERGY
     Dosage: UNK UNK, PRN
     Dates: start: 20060116
  13. SINGULAIR [Concomitant]
  14. MOBIC [Concomitant]
  15. COUMADIN [Concomitant]
     Indication: DEEP VEIN THROMBOSIS

REACTIONS (8)
  - VENOUS INSUFFICIENCY [None]
  - PULMONARY EMBOLISM [None]
  - POST THROMBOTIC SYNDROME [None]
  - OEDEMA PERIPHERAL [None]
  - DEEP VEIN THROMBOSIS [None]
  - THROMBOPHLEBITIS [None]
  - VEIN DISORDER [None]
  - PAIN IN EXTREMITY [None]
